FAERS Safety Report 5212917-9 (Version None)
Quarter: 2007Q1

REPORT INFORMATION
  Report Type: 
  Country: None (occurrence: None)
  Receive Date: 20070119
  Receipt Date: 20070111
  Transmission Date: 20070707
  Serious: Yes (Life-Threatening)
  Sender: FDA-Public Use
  Company Number: JP-BAYER-200710275GDS

PATIENT
  Age: 0 Hour
  Weight: 0.663 kg

DRUGS (1)
  1. ASPIRIN [Suspect]
     Indication: DRUG USE FOR UNKNOWN INDICATION
     Route: 064

REACTIONS (3)
  - GASTROINTESTINAL PERFORATION [None]
  - PREMATURE BABY [None]
  - SMALL FOR DATES BABY [None]
